FAERS Safety Report 5578212-3 (Version None)
Quarter: 2007Q4

REPORT INFORMATION
  Report Type: 
  Country: None (occurrence: None)
  Receive Date: 20071227
  Receipt Date: 20071221
  Transmission Date: 20080405
  Serious: Yes (Hospitalization)
  Sender: FDA-Public Use
  Company Number: SP01727

PATIENT
  Age: 54 Year
  Sex: Male

DRUGS (6)
  1. VISICOL [Suspect]
     Indication: ENDOSCOPY LARGE BOWEL
     Dosage: 50G (50TAB), ORAL
     Route: 048
     Dates: start: 20071204, end: 20071204
  2. SENNOSIDE [Concomitant]
  3. MAGNESIUM CITRATE [Concomitant]
  4. SODIUM PICOSULFATE [Concomitant]
  5. METOCLOPRAMIDE [Concomitant]
  6. DIMETICONE [Concomitant]

REACTIONS (2)
  - HAEMATEMESIS [None]
  - MALLORY-WEISS SYNDROME [None]
